FAERS Safety Report 7560966-8 (Version None)
Quarter: 2011Q2

REPORT INFORMATION
  Report Type: 
  Country: None (occurrence: None)
  Receive Date: 20110621
  Receipt Date: 20110616
  Transmission Date: 20111010
  Serious: Yes (Hospitalization)
  Sender: FDA-Public Use
  Company Number: US-ABBOTT-11P-163-0727658-00

PATIENT
  Sex: Female
  Weight: 55.842 kg

DRUGS (12)
  1. CHLORACON M10 [Concomitant]
     Indication: PRODUCT USED FOR UNKNOWN INDICATION
  2. PREDNISONE [Concomitant]
     Dosage: 40MG FOR 5 DAYS THEN D/C
  3. BIRTH CONTROL [Concomitant]
     Indication: CONTRACEPTION
     Dosage: 21 DAY CYCLE
  4. HUMIRA [Suspect]
     Indication: CROHN'S DISEASE
     Dosage: LOADING DOSE ONLY
     Dates: start: 20110517, end: 20110517
  5. OMEPRAZOLE [Concomitant]
     Indication: GASTROOESOPHAGEAL REFLUX DISEASE
  6. PREDNISONE [Concomitant]
     Indication: PRODUCT USED FOR UNKNOWN INDICATION
     Dosage: 50MG, 5 10MG TABLET DAILY
  7. PHERGAN [Concomitant]
     Indication: PRODUCT USED FOR UNKNOWN INDICATION
  8. LORACET 10 [Concomitant]
     Indication: PRODUCT USED FOR UNKNOWN INDICATION
     Dosage: 1/2 A TAB, PRN
  9. ATIVAN [Concomitant]
     Indication: PRODUCT USED FOR UNKNOWN INDICATION
     Dosage: 0.5MG 1 TAB TID WITH PREDNISONE
  10. ANTIDIARRHEAL [Concomitant]
     Indication: DIARRHOEA
     Dosage: OTC
  11. CELEXA [Concomitant]
     Indication: DEPRESSION
  12. POTASSIUM [Concomitant]
     Indication: BLOOD POTASSIUM DECREASED

REACTIONS (6)
  - SPUTUM DISCOLOURED [None]
  - ORAL HERPES [None]
  - OVARIAN CYST [None]
  - PAIN [None]
  - COUGH [None]
  - OROPHARYNGEAL PAIN [None]
